FAERS Safety Report 17078252 (Version 1)
Quarter: 2019Q4

REPORT INFORMATION
  Report Type: Spontaneous
  Country: TR (occurrence: TR)
  Receive Date: 20191126
  Receipt Date: 20191126
  Transmission Date: 20200122
  Serious: Yes (Hospitalization)
  Sender: FDA-Public Use
  Company Number: TR-BEH-2019109728

PATIENT
  Age: 47 Month
  Sex: Male

DRUGS (1)
  1. PRIVIGEN [Suspect]
     Active Substance: HUMAN IMMUNOGLOBULIN G
     Dosage: 7.5 GRAM
     Route: 065

REACTIONS (5)
  - Confusional state [Unknown]
  - Pyrexia [Unknown]
  - Tremor [Unknown]
  - Seizure [Unknown]
  - Chills [Unknown]
